FAERS Safety Report 23167908 (Version 1)
Quarter: 2023Q4

REPORT INFORMATION
  Report Type: Spontaneous
  Country: CN (occurrence: CN)
  Receive Date: 20231109
  Receipt Date: 20231109
  Transmission Date: 20240109
  Serious: Yes (Life-Threatening)
  Sender: FDA-Public Use
  Company Number: CN-PFIZER INC-PV202300181262

PATIENT
  Age: 67 Year
  Sex: Female
  Weight: 60 kg

DRUGS (2)
  1. TIGECYCLINE [Suspect]
     Active Substance: TIGECYCLINE
     Indication: Pneumonia
     Dosage: 50 MG, 2X/DAY
     Route: 041
     Dates: start: 20231014, end: 20231028
  2. SODIUM CHLORIDE [Concomitant]
     Active Substance: SODIUM CHLORIDE
     Indication: Vehicle solution use
     Dosage: 100 ML, 2X/DAY
     Route: 041
     Dates: start: 20231014, end: 20231028

REACTIONS (2)
  - Myelosuppression [Recovering/Resolving]
  - Off label use [Unknown]

NARRATIVE: CASE EVENT DATE: 20231014
